FAERS Safety Report 6442835-X (Version None)
Quarter: 2009Q4

REPORT INFORMATION
  Report Type: 
  Country: None (occurrence: None)
  Receive Date: 20091117
  Receipt Date: 20091109
  Transmission Date: 20100525
  Serious: Yes (Disabling, Other)
  Sender: FDA-Public Use
  Company Number: US-B.I. PHARMACEUTICALS,INC./RIDGEFIELD-2007-BP-06753BP

PATIENT
  Sex: Male

DRUGS (1)
  1. FLOMAX [Suspect]
     Indication: PROSTATOMEGALY
     Dosage: 0.4 MG

REACTIONS (5)
  - CORNEAL DISORDER [None]
  - FLOPPY IRIS SYNDROME [None]
  - PUPIL FIXED [None]
  - RETINAL INJURY [None]
  - VISUAL IMPAIRMENT [None]
